FAERS Safety Report 14272848 (Version 2)
Quarter: 2018Q2

REPORT INFORMATION
  Report Type: Spontaneous
  Country: US (occurrence: US)
  Receive Date: 20171211
  Receipt Date: 20180628
  Transmission Date: 20180711
  Serious: Yes (Other)
  Sender: FDA-Public Use
  Company Number: US-OTSUKA-2017_010762

PATIENT
  Sex: Male

DRUGS (1)
  1. ABILIFY [Suspect]
     Active Substance: ARIPIPRAZOLE
     Indication: BIPOLAR DISORDER
     Dosage: 10 MG, UNK
     Route: 065
     Dates: start: 20140508, end: 20150421

REACTIONS (5)
  - Gambling disorder [Recovered/Resolved]
  - Injury [Unknown]
  - Neuropsychiatric symptoms [Recovered/Resolved]
  - Emotional distress [Recovered/Resolved]
  - Economic problem [Unknown]
